FAERS Safety Report 9908831 (Version 1)
Quarter: 2014Q1

REPORT INFORMATION
  Report Type: Spontaneous
  Country: FR (occurrence: FR)
  Receive Date: 20140219
  Receipt Date: 20140219
  Transmission Date: 20141002
  Serious: Yes (Hospitalization)
  Sender: FDA-Public Use
  Company Number: FR-ASTRAZENECA-2014SE10135

PATIENT
  Age: 23984 Day
  Sex: Male

DRUGS (16)
  1. DIPRIVAN [Suspect]
     Indication: ANAESTHESIA
     Route: 042
     Dates: start: 20130924, end: 20130924
  2. MORPHINE [Suspect]
     Indication: POSTOPERATIVE ANALGESIA
     Dosage: 10 MG/L
     Route: 042
     Dates: start: 20130924, end: 20130925
  3. PARACETAMOL [Suspect]
     Indication: POSTOPERATIVE ANALGESIA
     Route: 042
     Dates: start: 20130924, end: 20130926
  4. DEXAMETHASONE [Suspect]
     Indication: PROCEDURAL VOMITING
     Route: 042
     Dates: start: 20130924, end: 20130924
  5. XARELTO [Suspect]
     Route: 048
     Dates: start: 20130925, end: 20131029
  6. DROLEPTAN [Suspect]
     Indication: PROCEDURAL VOMITING
     Route: 042
     Dates: start: 20130924, end: 20130926
  7. PROFENID [Suspect]
     Route: 042
     Dates: start: 20130924, end: 20130926
  8. CHLORHYDRATE DE NEFOPAM [Suspect]
     Indication: POSTOPERATIVE ANALGESIA
     Route: 042
     Dates: start: 20130924, end: 20130926
  9. EUPANTOL [Suspect]
     Indication: PROPHYLAXIS AGAINST GASTROINTESTINAL ULCER
     Route: 048
     Dates: start: 20130925, end: 20130929
  10. ONDANSETRON [Suspect]
     Indication: PROCEDURAL VOMITING
     Route: 042
     Dates: start: 20130924, end: 20130924
  11. EXACYL [Suspect]
     Indication: HAEMORRHAGE
     Dosage: 2 DF 500MG/5ML
     Route: 042
     Dates: start: 20130924, end: 20130924
  12. HYPNOVEL [Suspect]
     Indication: ANAESTHESIA
     Route: 042
     Dates: start: 20130924, end: 20130924
  13. SUFENTA [Suspect]
     Indication: ANAESTHESIA
     Route: 042
     Dates: start: 20130924, end: 20130924
  14. NIMBEX [Suspect]
     Indication: ANAESTHESIA
     Route: 042
     Dates: start: 20130924, end: 20130924
  15. KETAMINE [Suspect]
     Indication: ANAESTHESIA
     Route: 042
     Dates: start: 20130924, end: 20130924
  16. TRIATEC [Concomitant]
     Route: 048

REACTIONS (1)
  - Mania [Recovered/Resolved]
